FAERS Safety Report 8807297 (Version 2)
Quarter: 2012Q4

REPORT INFORMATION
  Report Type: Report from Study
  Country: JP (occurrence: JP)
  Receive Date: 20120925
  Receipt Date: 20121108
  Transmission Date: 20130627
  Serious: Yes (Hospitalization)
  Sender: FDA-Public Use
  Company Number: JP-ROCHE-1107338

PATIENT
  Age: 66 Year
  Sex: Female
  Weight: 35 kg

DRUGS (10)
  1. TOCILIZUMAB [Suspect]
     Indication: RHEUMATOID ARTHRITIS
     Route: 041
     Dates: start: 20090427, end: 20100309
  2. TOCILIZUMAB [Suspect]
     Indication: RHEUMATOID ARTHRITIS
     Route: 041
     Dates: start: 20100512, end: 20110913
  3. TOCILIZUMAB [Suspect]
     Indication: RHEUMATOID ARTHRITIS
     Route: 041
     Dates: start: 20111115
  4. PREDNISOLONE [Suspect]
     Indication: RHEUMATOID ARTHRITIS
     Route: 048
     Dates: start: 20091228, end: 2010
  5. PREDNISOLONE [Suspect]
     Route: 048
     Dates: start: 20100112, end: 2010
  6. PREDNISOLONE [Suspect]
     Route: 048
     Dates: start: 20100226, end: 2010
  7. PREDNISOLONE [Suspect]
     Route: 048
     Dates: start: 20100309, end: 20100812
  8. PREDNISOLONE [Suspect]
     Route: 048
     Dates: start: 20100909, end: 20101209
  9. PREDNISOLONE [Suspect]
     Route: 048
     Dates: start: 20110105, end: 20110308
  10. METHOTREXATE [Concomitant]
     Indication: RHEUMATOID ARTHRITIS
     Route: 048

REACTIONS (4)
  - Cellulitis [Recovered/Resolved]
  - Cerebral infarction [Recovered/Resolved]
  - Arteriosclerosis [Unknown]
  - Gingival infection [Recovered/Resolved]
